FAERS Safety Report 21608971 (Version 2)
Quarter: 2025Q2

REPORT INFORMATION
  Report Type: Spontaneous
  Country: PT (occurrence: PT)
  Receive Date: 20221117
  Receipt Date: 20250530
  Transmission Date: 20250716
  Serious: Yes (Hospitalization, Other)
  Sender: AUROBINDO
  Company Number: PT-GT-20221408

PATIENT
  Age: 71 Year
  Sex: Male

DRUGS (1)
  1. AMOXICILLIN\CLAVULANIC ACID [Suspect]
     Active Substance: AMOXICILLIN\CLAVULANIC ACID
     Indication: Tooth abscess
     Route: 065

REACTIONS (6)
  - Jaundice [Recovering/Resolving]
  - Pruritus [Recovering/Resolving]
  - Choluria [Recovering/Resolving]
  - Autoimmune hepatitis [Recovering/Resolving]
  - Drug-induced liver injury [Recovering/Resolving]
  - Deficiency of bile secretion [Recovering/Resolving]
